FAERS Safety Report 17989894 (Version 3)
Quarter: 2020Q3

REPORT INFORMATION
  Report Type: Spontaneous
  Country: GB (occurrence: GB)
  Receive Date: 20200707
  Receipt Date: 20200722
  Transmission Date: 20201103
  Serious: Yes (Other)
  Sender: FDA-Public Use
  Company Number: GB-MYLANLABS-2020M1061273

PATIENT
  Age: 63 Year
  Sex: Male
  Weight: 95.25 kg

DRUGS (3)
  1. TAMSULOSIN [Concomitant]
     Active Substance: TAMSULOSIN
     Indication: DYSURIA
     Dosage: 400 MILLIGRAM, 5 YEARS AGO
     Route: 048
  2. RAMIPRIL. [Concomitant]
     Active Substance: RAMIPRIL
     Indication: HYPERTENSION
     Dosage: 5 MILLIGRAM,  (5 MILLIGRAM, 1 YEAR AGO  )
     Route: 048
  3. FINASTERIDE. [Suspect]
     Active Substance: FINASTERIDE
     Indication: PROSTATIC DISORDER
     Dosage: 5 MILLIGRAM, QD (ONCE A DAY )
     Route: 048
     Dates: start: 201912, end: 202006

REACTIONS (4)
  - Erectile dysfunction [Not Recovered/Not Resolved]
  - Sperm concentration decreased [Recovering/Resolving]
  - Ejaculation failure [Recovering/Resolving]
  - Loss of libido [Not Recovered/Not Resolved]
